FAERS Safety Report 9227467 (Version 2)
Quarter: 2013Q3

REPORT INFORMATION
  Report Type: Spontaneous
  Country: CR (occurrence: CR)
  Receive Date: 20130412
  Receipt Date: 20130827
  Transmission Date: 20140515
  Serious: Yes (Other)
  Sender: FDA-Public Use
  Company Number: PHHY2013CR035177

PATIENT
  Sex: Female

DRUGS (1)
  1. EXJADE [Suspect]
     Indication: IRON OVERLOAD

REACTIONS (5)
  - Malnutrition [Unknown]
  - Renal failure [Unknown]
  - Blood creatinine increased [Unknown]
  - Pain [Unknown]
  - Anaemia [Unknown]
